FAERS Safety Report 9440505 (Version 1)
Quarter: 2013Q3

REPORT INFORMATION
  Report Type: Spontaneous
  Country: CA (occurrence: CA)
  Receive Date: 20130805
  Receipt Date: 20130805
  Transmission Date: 20140515
  Serious: Yes (Other)
  Sender: FDA-Public Use
  Company Number: CA-TEVA-422992USA

PATIENT
  Age: 31 Year
  Sex: Female
  Weight: 68.1 kg

DRUGS (3)
  1. FLUOXETINE [Suspect]
     Dosage: 20 MILLIGRAM DAILY;
     Route: 048
  2. DIANE-35 [Concomitant]
     Route: 065
  3. DEXEDRINE [Concomitant]
     Route: 065

REACTIONS (4)
  - Abdominal pain [Recovered/Resolved]
  - Activities of daily living impaired [Recovered/Resolved]
  - Insomnia [Recovered/Resolved]
  - Nausea [Recovered/Resolved]
